FAERS Safety Report 14849458 (Version 3)
Quarter: 2018Q4

REPORT INFORMATION
  Report Type: Spontaneous
  Country: US (occurrence: US)
  Receive Date: 20180504
  Receipt Date: 20181121
  Transmission Date: 20190204
  Serious: Yes (Other)
  Sender: FDA-Public Use
  Company Number: US-PFIZER INC-2017526305

PATIENT
  Age: 69 Year
  Sex: Female
  Weight: 63.49 kg

DRUGS (23)
  1. DOCETAXEL. [Suspect]
     Active Substance: DOCETAXEL
     Dosage: UNK, EVERY 3 WEEKS
     Dates: start: 20121011, end: 20130214
  2. DOCETAXEL HOSPIRA [Suspect]
     Active Substance: DOCETAXEL
     Dosage: 95 MG, EVERY 3 WEEKS (7 CYCLES)
     Dates: start: 20121211
  3. TAXOTERE [Suspect]
     Active Substance: DOCETAXEL
     Dosage: 130 MG, EVERY 3 WEEKS (7 CYCLES)
     Dates: start: 20120103
  4. PARAPLATIN [Concomitant]
     Active Substance: CARBOPLATIN
     Dosage: 450 MG, UNK
     Dates: start: 20121211
  5. DOCETAXEL. [Suspect]
     Active Substance: DOCETAXEL
     Dosage: 70 MG, EVERY 3 WEEKS (7 CYCLES)
     Dates: start: 20121120
  6. DOCETAXEL. [Suspect]
     Active Substance: DOCETAXEL
     Dosage: 95 MG, EVERY 3 WEEKS (7 CYCLES)
     Dates: start: 20121211
  7. DOCETAXEL HOSPIRA [Suspect]
     Active Substance: DOCETAXEL
     Dosage: 70 MG, EVERY 3 WEEKS (7 CYELS)
     Dates: start: 20121120
  8. DOCETAXEL HOSPIRA [Suspect]
     Active Substance: DOCETAXEL
     Dosage: 115 MG, EVERY 3 WEEKS (7 CYCLES)
     Dates: start: 20130122, end: 20130305
  9. PARAPLATIN [Concomitant]
     Active Substance: CARBOPLATIN
     Dosage: 300 MG, UNK
     Dates: start: 20121120
  10. TAXOTERE [Suspect]
     Active Substance: DOCETAXEL
     Dosage: UNK, EVERY 3 WEEKS
     Dates: start: 20121011, end: 20130214
  11. PARAPLATIN [Concomitant]
     Active Substance: CARBOPLATIN
     Indication: CHEMOTHERAPY
     Dosage: 500 MG, UNK
     Dates: start: 20121011
  12. PARAPLATIN [Concomitant]
     Active Substance: CARBOPLATIN
     Dosage: 500 MG, UNK
     Dates: start: 20130103, end: 20130305
  13. DOCETAXEL. [Suspect]
     Active Substance: DOCETAXEL
     Dosage: 115 MG, EVERY 3 WEEKS (7 CYCLES)
     Dates: start: 20130122, end: 20130305
  14. TAXOTERE [Suspect]
     Active Substance: DOCETAXEL
     Indication: BREAST CANCER
     Dosage: 130 MG, EVERY 3 WEEKS (7 CYCLES)
     Dates: start: 20121011
  15. DOCETAXEL. [Suspect]
     Active Substance: DOCETAXEL
     Indication: BREAST CANCER
     Dosage: 130 MG, EVERY 3 WEEKS (7 CYCLES)
     Dates: start: 20121011
  16. DOCETAXEL HOSPIRA [Suspect]
     Active Substance: DOCETAXEL
     Indication: BREAST CANCER
     Dosage: 130 MG, EVERY 3 WEEKS (7 CYCLES)
     Dates: start: 20121011
  17. DOCETAXEL HOSPIRA [Suspect]
     Active Substance: DOCETAXEL
     Dosage: 130 MG, EVERY 3 WEEKS (7CYCLES)
     Dates: start: 20120103
  18. TAXOTERE [Suspect]
     Active Substance: DOCETAXEL
     Dosage: 70 MG, UNK (7 CYCLES EVERY 3 WKS)
     Dates: start: 20121120
  19. TAXOTERE [Suspect]
     Active Substance: DOCETAXEL
     Dosage: 95 MG, UNK (7 CYCLES EVERY 3 WKS)
     Dates: start: 20121211
  20. PREMPRO [Concomitant]
     Active Substance: ESTROGENS, CONJUGATED\MEDROXYPROGESTERONE ACETATE
     Dosage: UNK
     Dates: start: 1987, end: 2012
  21. DOCETAXEL. [Suspect]
     Active Substance: DOCETAXEL
     Dosage: 130 MG, EVERY 3 WEEKS (7 CYCLES)
     Dates: start: 20120103
  22. DOCETAXEL HOSPIRA [Suspect]
     Active Substance: DOCETAXEL
     Dosage: UNK, EVERY 3 WEEKS
     Dates: start: 20121011, end: 20130214
  23. TAXOTERE [Suspect]
     Active Substance: DOCETAXEL
     Dosage: 115 MG, UNK (7 CYCLES EVERY 3 WKS)
     Dates: start: 20130122, end: 20130305

REACTIONS (7)
  - Hair texture abnormal [Not Recovered/Not Resolved]
  - Alopecia [Not Recovered/Not Resolved]
  - Depression [Unknown]
  - Hair colour changes [Not Recovered/Not Resolved]
  - Hair disorder [Not Recovered/Not Resolved]
  - Madarosis [Not Recovered/Not Resolved]
  - Condition aggravated [Unknown]

NARRATIVE: CASE EVENT DATE: 20130905
